FAERS Safety Report 10004135 (Version 4)
Quarter: 2015Q2

REPORT INFORMATION
  Report Type: Spontaneous
  Country: US (occurrence: US)
  Receive Date: 20140312
  Receipt Date: 20150525
  Transmission Date: 20150821
  Serious: No
  Sender: FDA-Public Use
  Company Number: US-JNJFOC-20140303748

PATIENT
  Age: 45 Year
  Sex: Male

DRUGS (11)
  1. STELARA [Suspect]
     Active Substance: USTEKINUMAB
     Indication: PSORIASIS
     Route: 058
     Dates: start: 20140304
  2. REMERON [Concomitant]
     Active Substance: MIRTAZAPINE
     Route: 065
  3. PRISTIQ EXTENDED RELEASE [Concomitant]
     Active Substance: DESVENLAFAXINE SUCCINATE
     Route: 065
  4. LITHIUM ASPARTATE [Concomitant]
     Active Substance: LITHIUM ASPARTATE
     Route: 065
  5. STELARA [Suspect]
     Active Substance: USTEKINUMAB
     Indication: PSORIASIS
     Route: 058
     Dates: start: 20131010, end: 20140218
  6. VALIUM [Concomitant]
     Active Substance: DIAZEPAM
     Route: 065
  7. WELLBUTRIN [Concomitant]
     Active Substance: BUPROPION HYDROCHLORIDE
     Route: 065
  8. GEODON [Concomitant]
     Active Substance: ZIPRASIDONE HYDROCHLORIDE\ZIPRASIDONE MESYLATE
     Route: 065
  9. DEPAKOTE [Concomitant]
     Active Substance: DIVALPROEX SODIUM
     Route: 065
  10. TRAZODONE [Concomitant]
     Active Substance: TRAZODONE HYDROCHLORIDE
     Route: 065
  11. DEXEDRINE [Concomitant]
     Active Substance: DEXTROAMPHETAMINE SULFATE
     Route: 065

REACTIONS (1)
  - Drug eruption [Recovered/Resolved]

NARRATIVE: CASE EVENT DATE: 20140304
